FAERS Safety Report 7366555-2 (Version None)
Quarter: 2011Q1

REPORT INFORMATION
  Report Type: 
  Country: None (occurrence: None)
  Receive Date: 20110322
  Receipt Date: 20110314
  Transmission Date: 20110831
  Serious: Yes (Other)
  Sender: FDA-Public Use
  Company Number: US-AMGEN-USASP2011013955

PATIENT
  Age: 70 Year
  Sex: Male

DRUGS (23)
  1. ASPIRIN [Concomitant]
     Dosage: UNK
  2. PROTAMINE SULFATE [Concomitant]
     Dosage: UNK
  3. VANCOMYCIN [Concomitant]
     Dosage: UNK
  4. COLACE [Concomitant]
     Dosage: UNK
  5. NEPRO [Concomitant]
     Dosage: UNK
  6. GABAPENTIN [Concomitant]
     Dosage: UNK
  7. SINGULAIR [Concomitant]
     Dosage: UNK
  8. ALBUTEROL [Concomitant]
     Dosage: UNK
  9. PROCRIT [Suspect]
     Indication: RENAL FAILURE CHRONIC
  10. MORTIN [Concomitant]
     Dosage: UNK
  11. PULMICORT FLEXHALER [Concomitant]
     Dosage: UNK
  12. OMEPRAZOLE [Concomitant]
     Dosage: UNK
  13. JANUVIA [Concomitant]
     Dosage: UNK
  14. DUONEB [Concomitant]
     Dosage: UNK
  15. AMICAR [Concomitant]
     Dosage: UNK
  16. MECLIZINE                          /00072801/ [Concomitant]
     Dosage: UNK
  17. EPOGEN [Suspect]
     Indication: RENAL FAILURE CHRONIC
     Dosage: 20000 IU, 2 TIMES/WK
     Route: 058
  18. ZOLOFT [Concomitant]
     Dosage: UNK MG, UNK
  19. PRAVACHOL [Concomitant]
     Dosage: UNK
  20. EPOGEN [Suspect]
     Dosage: 27500 IU, 3 TIMES/WK
     Route: 042
     Dates: start: 20100901
  21. PRINIVIL                           /00894001/ [Concomitant]
     Dosage: UNK
  22. TOPROL-XL [Concomitant]
     Dosage: UNK
  23. HUMALOG [Concomitant]
     Dosage: UNK

REACTIONS (1)
  - HAEMOGLOBIN DECREASED [None]
